FAERS Safety Report 17634907 (Version 1)
Quarter: 2020Q2

REPORT INFORMATION
  Report Type: Spontaneous
  Country: US (occurrence: US)
  Receive Date: 20200407
  Receipt Date: 20200407
  Transmission Date: 20200713
  Serious: Yes (Hospitalization)
  Sender: FDA-Public Use
  Company Number: US-MTPC-MTDA2020-0049186

PATIENT
  Age: 72 Year
  Sex: Female

DRUGS (3)
  1. INTRAVENOUS IMMUNOGLOBULIN [Concomitant]
     Active Substance: HUMAN IMMUNOGLOBULIN G
     Indication: IMMUNODEFICIENCY
     Dosage: UNK, MONTHLY
     Route: 042
     Dates: start: 2019
  2. RADICAVA [Suspect]
     Active Substance: EDARAVONE
     Dosage: 60 MILLIGRAM, QD, DAILY DOSING FOR 10 DAYS, FOLLOWED BY A 14-DAY DRUG-FREE PERIOD
     Route: 042
  3. RADICAVA [Suspect]
     Active Substance: EDARAVONE
     Indication: AMYOTROPHIC LATERAL SCLEROSIS
     Dosage: 60 MILLIGRAM, QD DAILY DOSING FOR 14 DAYS, FOLLOWED BY A 14-DAY DRUG-FREE PERIOD
     Route: 042

REACTIONS (4)
  - Femur fracture [Recovering/Resolving]
  - Pulmonary congestion [Unknown]
  - Fall [Recovered/Resolved]
  - Oral candidiasis [Recovering/Resolving]

NARRATIVE: CASE EVENT DATE: 202003
